FAERS Safety Report 21548990 (Version 1)
Quarter: 2022Q4

REPORT INFORMATION
  Report Type: Spontaneous
  Country: US (occurrence: None)
  Receive Date: 20221102
  Receipt Date: 20221102
  Transmission Date: 20230113
  Serious: Yes (Hospitalization)
  Sender: FDA-Public Use
  Company Number: None

PATIENT
  Age: 76 Year
  Sex: Male
  Weight: 72.44 kg

DRUGS (18)
  1. LENALIDOMIDE [Suspect]
     Active Substance: LENALIDOMIDE
     Dosage: OTHER FREQUENCY : 21D ON 7D OFF;?
     Route: 048
     Dates: start: 202203
  2. ACYCLOVIR [Concomitant]
  3. ASPIRIN [Concomitant]
     Active Substance: ASPIRIN
  4. ATORVASTATIN [Concomitant]
  5. DEXAMETHASONE [Concomitant]
  6. GABAPENTIN [Concomitant]
  7. HYDROCHLOROTHIAZIDE [Concomitant]
  8. HYDROMORPHONE [Concomitant]
  9. LEVOTHYROXINE [Concomitant]
  10. LIDOCAINE-PRILOCAINE [Concomitant]
  11. LORAZEPAM [Concomitant]
  12. MORPHINE [Concomitant]
  13. MOVANTIK [Concomitant]
     Active Substance: NALOXEGOL OXALATE
  14. MULTIVITAMIN [Concomitant]
  15. ONDANSETRON [Concomitant]
  16. PROCHLORPERAZINE [Concomitant]
  17. SENNA-DOCUSATE [Concomitant]
  18. TUMS [Concomitant]

REACTIONS (2)
  - Heart rate decreased [None]
  - Pulmonary oedema [None]
